FAERS Safety Report 7812688-3 (Version None)
Quarter: 2011Q4

REPORT INFORMATION
  Report Type: 
  Country: None (occurrence: None)
  Receive Date: 20111013
  Receipt Date: 20110930
  Transmission Date: 20120403
  Serious: Yes (Hospitalization)
  Sender: FDA-Public Use
  Company Number: GB-ELI_LILLY_AND_COMPANY-GB201109008558

PATIENT
  Age: 69 Year
  Sex: Female
  Weight: 85 kg

DRUGS (7)
  1. CALCIUM CARBONATE [Concomitant]
  2. FLUTICASONE PROPIONATE/SALMETEROL [Concomitant]
  3. CYMBALTA [Suspect]
     Indication: NEUROPATHY PERIPHERAL
     Dosage: 60 MG, UNKNOWN
     Route: 048
     Dates: start: 20110819, end: 20110901
  4. MONTELUKAST SODIUM [Concomitant]
  5. OXYCONTIN [Concomitant]
  6. ATORVASTATIN [Concomitant]
  7. DOXAZOSIN MESYLATE [Concomitant]

REACTIONS (5)
  - VOMITING [None]
  - HALLUCINATION, VISUAL [None]
  - OFF LABEL USE [None]
  - DYSPRAXIA [None]
  - DIARRHOEA [None]
